FAERS Safety Report 13740187 (Version 1)
Quarter: 2017Q3

REPORT INFORMATION
  Report Type: Spontaneous
  Country: US (occurrence: US)
  Receive Date: 20170711
  Receipt Date: 20170711
  Transmission Date: 20171127
  Serious: No
  Sender: FDA-Public Use
  Company Number: US-ALKERMES INC.-ALK-2017-001434

PATIENT
  Age: 27 Year
  Sex: Female
  Weight: 79.37 kg

DRUGS (1)
  1. ARISTADA [Suspect]
     Active Substance: ARIPIPRAZOLE LAUROXIL
     Indication: SCHIZOAFFECTIVE DISORDER
     Dosage: 441 MG, Q28D
     Route: 030
     Dates: start: 20170331

REACTIONS (2)
  - Needle issue [Recovered/Resolved]
  - Off label use [Unknown]
